FAERS Safety Report 24298299 (Version 1)
Quarter: 2024Q3

REPORT INFORMATION
  Report Type: Spontaneous
  Country: US (occurrence: None)
  Receive Date: 20240906
  Receipt Date: 20240906
  Transmission Date: 20241017
  Serious: Yes (Hospitalization)
  Sender: Public
  Company Number: None

PATIENT
  Sex: Male

DRUGS (8)
  1. SIROLIMUS [Suspect]
     Active Substance: SIROLIMUS
     Indication: Deficiency anaemia
     Dosage: OTHER FREQUENCY : EVERY DAY AT 6PM;?
     Route: 048
     Dates: start: 20240719
  2. BUPROPION HYDROCHLORIDE [Concomitant]
     Active Substance: BUPROPION HYDROCHLORIDE
  3. FOLIC ACID [Concomitant]
  4. KLONOPIN [Concomitant]
  5. GABAPENTIN [Concomitant]
  6. PREDNISONE [Concomitant]
  7. PROPRANOLOL [Concomitant]
  8. SIROLIMUS [Concomitant]
     Active Substance: SIROLIMUS

REACTIONS (1)
  - Hospitalisation [None]
